FAERS Safety Report 8353215-4 (Version None)
Quarter: 2012Q2

REPORT INFORMATION
  Report Type: 
  Country: None (occurrence: None)
  Receive Date: 20120511
  Receipt Date: 20120507
  Transmission Date: 20120825
  Serious: Yes (Death, Other)
  Sender: FDA-Public Use
  Company Number: FR-GENZYME-CLOF-1000862

PATIENT
  Sex: Female
  Weight: 80 kg

DRUGS (8)
  1. MITOXANTRONE [Suspect]
     Indication: ACUTE LYMPHOCYTIC LEUKAEMIA RECURRENT
     Dosage: 8 MG/M2, QD (2 DAYS)
     Route: 042
     Dates: start: 20100110, end: 20100111
  2. ETOPOSIDE [Suspect]
     Indication: ACUTE LYMPHOCYTIC LEUKAEMIA RECURRENT
     Dosage: 150 MG/M2, QDX5
     Route: 042
     Dates: start: 20100108, end: 20100112
  3. METHOTREXATE [Concomitant]
     Indication: ACUTE LYMPHOCYTIC LEUKAEMIA RECURRENT
     Dosage: 15 MG, ONCE
     Route: 037
     Dates: start: 20100105, end: 20100105
  4. DEXAMETHASONE [Suspect]
     Indication: ACUTE LYMPHOCYTIC LEUKAEMIA RECURRENT
     Dosage: 10 MG/M2, QDX5
     Route: 048
     Dates: start: 20100108, end: 20100112
  5. CYTARABINE [Concomitant]
     Indication: ACUTE LYMPHOCYTIC LEUKAEMIA RECURRENT
     Dosage: 40 MG, ONCE
     Route: 037
     Dates: start: 20100105, end: 20100105
  6. EVOLTRA [Suspect]
     Indication: ACUTE LYMPHOCYTIC LEUKAEMIA RECURRENT
     Dosage: 30 MG/M2, QDX5
     Route: 042
     Dates: start: 20100108, end: 20100112
  7. DEPO-MEDROL [Concomitant]
     Indication: ACUTE LYMPHOCYTIC LEUKAEMIA RECURRENT
     Dosage: 40 MG, ONCE
     Route: 037
     Dates: start: 20100105, end: 20100105
  8. PEG-ASPARAGINASE [Suspect]
     Indication: ACUTE LYMPHOCYTIC LEUKAEMIA RECURRENT
     Dosage: 2500 UI/M2, ONCE
     Route: 042
     Dates: start: 20100114, end: 20100114

REACTIONS (3)
  - TOXIC ENCEPHALOPATHY [None]
  - CLOSTRIDIUM DIFFICILE COLITIS [None]
  - SEPSIS [None]
